FAERS Safety Report 4594896-0 (Version None)
Quarter: 2005Q1

REPORT INFORMATION
  Report Type: 
  Country: None (occurrence: None)
  Receive Date: 20050223
  Receipt Date: 20050104
  Transmission Date: 20050727
  Serious: Yes (Hospitalization, Other)
  Sender: FDA-Public Use
  Company Number: 2004121586

PATIENT
  Age: 77 Year
  Sex: Male

DRUGS (1)
  1. CELBRA (CELECOXIB) [Suspect]
     Indication: OSTEOARTHRITIS
     Dosage: ORAL
     Route: 048

REACTIONS (4)
  - ASTHENIA [None]
  - HUMERUS FRACTURE [None]
  - POST PROCEDURAL COMPLICATION [None]
  - TRANSIENT ISCHAEMIC ATTACK [None]
